FAERS Safety Report 8756866 (Version 1)
Quarter: 2012Q4

REPORT INFORMATION
  Report Type: 
  Country: US (occurrence: US)
  Receive Date: 20120828
  Receipt Date: 20120828
  Transmission Date: 20130627
  Serious: No
  Sender: FDA-Public Use
  Company Number: US-009507513-1207USA010423

PATIENT

DRUGS (1)
  1. ZEGERID OTC [Suspect]
     Indication: MEDICAL OBSERVATION
     Dosage: UNK, Unknown
     Route: 048
     Dates: start: 201207

REACTIONS (1)
  - Somnolence [Unknown]
